FAERS Safety Report 4704875-8 (Version None)
Quarter: 2005Q2

REPORT INFORMATION
  Report Type: 
  Country: None (occurrence: None)
  Receive Date: 20050630
  Receipt Date: 20050630
  Transmission Date: 20051028
  Serious: Yes (Life-Threatening)
  Sender: FDA-Public Use
  Company Number: None

PATIENT
  Age: 26 Year
  Sex: Female
  Weight: 49.8957 kg

DRUGS (1)
  1. XANAX [Suspect]
     Dosage: 1MG   3X'S A DAY  ORAL
     Route: 048
     Dates: start: 19960426, end: 19961026

REACTIONS (1)
  - UNEVALUABLE EVENT [None]
